FAERS Safety Report 24677057 (Version 4)
Quarter: 2025Q3

REPORT INFORMATION
  Report Type: Spontaneous
  Country: US (occurrence: US)
  Receive Date: 20241129
  Receipt Date: 20250925
  Transmission Date: 20251021
  Serious: Yes (Other)
  Sender: BRISTOL-MYERS SQUIBB COMPANY
  Company Number: US-BRISTOL-MYERS SQUIBB COMPANY-2024-183465

PATIENT
  Age: 78 Year
  Sex: Female

DRUGS (5)
  1. ORENCIA [Suspect]
     Active Substance: ABATACEPT
     Indication: Psoriatic arthropathy
     Dates: start: 202411
  2. ORENCIA [Suspect]
     Active Substance: ABATACEPT
     Dosage: FREQUENCY: EVERY 7 DAYS
     Dates: start: 202411
  3. ORENCIA [Suspect]
     Active Substance: ABATACEPT
     Dates: start: 202411
  4. RASUVO [Concomitant]
     Active Substance: METHOTREXATE SODIUM
     Indication: Psoriatic arthropathy
  5. RASUVO [Concomitant]
     Active Substance: METHOTREXATE SODIUM

REACTIONS (6)
  - Vertigo [Unknown]
  - Dizziness [Unknown]
  - Cataract [Unknown]
  - Drug ineffective [Unknown]
  - Dry skin [Unknown]
  - Device operational issue [Unknown]

NARRATIVE: CASE EVENT DATE: 20250601
